FAERS Safety Report 13354724 (Version 1)
Quarter: 2017Q1

REPORT INFORMATION
  Report Type: Spontaneous
  Country: US (occurrence: US)
  Receive Date: 20170320
  Receipt Date: 20170320
  Transmission Date: 20170429
  Serious: Yes (Hospitalization)
  Sender: FDA-Public Use
  Company Number: None

PATIENT
  Age: 80 Year
  Sex: Male

DRUGS (14)
  1. XANAX [Concomitant]
     Active Substance: ALPRAZOLAM
  2. FUROSEMIDE. [Concomitant]
     Active Substance: FUROSEMIDE
  3. ALBUTEROL. [Concomitant]
     Active Substance: ALBUTEROL
  4. EMLA [Concomitant]
     Active Substance: LIDOCAINE\PRILOCAINE
  5. LEVOTHYROXIN [Concomitant]
     Active Substance: LEVOTHYROXINE
  6. LONSURF [Suspect]
     Active Substance: TIPIRACIL HYDROCHLORIDE\TRIFLURIDINE
     Indication: COLON CANCER
     Route: 048
     Dates: start: 20170307
  7. OMEPRAZOLE. [Concomitant]
     Active Substance: OMEPRAZOLE
  8. MICRO-K [Concomitant]
     Active Substance: POTASSIUM CHLORIDE
  9. ELIQUIS [Concomitant]
     Active Substance: APIXABAN
  10. LONSURF [Suspect]
     Active Substance: TIPIRACIL HYDROCHLORIDE\TRIFLURIDINE
     Indication: COLON CANCER
     Route: 048
     Dates: start: 20170307
  11. LEVEMIR [Concomitant]
     Active Substance: INSULIN DETEMIR
  12. LISINOPRIL. [Concomitant]
     Active Substance: LISINOPRIL
  13. GABAPENTIN. [Concomitant]
     Active Substance: GABAPENTIN
  14. COREG [Concomitant]
     Active Substance: CARVEDILOL

REACTIONS (2)
  - Malaise [None]
  - Nausea [None]

NARRATIVE: CASE EVENT DATE: 20170316
